FAERS Safety Report 24831201 (Version 2)
Quarter: 2025Q2

REPORT INFORMATION
  Report Type: Spontaneous
  Country: US (occurrence: US)
  Receive Date: 20250110
  Receipt Date: 20250407
  Transmission Date: 20250717
  Serious: No
  Sender: BRISTOL MYERS SQUIBB
  Company Number: US-BRISTOL-MYERS SQUIBB COMPANY-2025-002346

PATIENT
  Age: 67 Year
  Sex: Male
  Weight: 102.06 kg

DRUGS (4)
  1. ORENCIA [Suspect]
     Active Substance: ABATACEPT
     Indication: Rheumatoid arthritis
     Route: 058
  2. ORENCIA [Suspect]
     Active Substance: ABATACEPT
     Indication: Rheumatoid arthritis
     Route: 042
     Dates: start: 20241120
  3. ORENCIA [Suspect]
     Active Substance: ABATACEPT
     Route: 042
     Dates: start: 20241207
  4. ORENCIA [Suspect]
     Active Substance: ABATACEPT
     Route: 042
     Dates: start: 20241217

REACTIONS (2)
  - Insurance issue [Unknown]
  - Back pain [Unknown]

NARRATIVE: CASE EVENT DATE: 20241219
